FAERS Safety Report 13887582 (Version 1)
Quarter: 2017Q3

REPORT INFORMATION
  Report Type: Spontaneous
  Country: US (occurrence: US)
  Receive Date: 20170821
  Receipt Date: 20170821
  Transmission Date: 20171127
  Serious: No
  Sender: FDA-Public Use
  Company Number: US-ROCHE-773143

PATIENT
  Sex: Female

DRUGS (5)
  1. ACTEMRA [Suspect]
     Active Substance: TOCILIZUMAB
     Indication: RHEUMATOID ARTHRITIS
     Dosage: FORM: INFUSION; FIRST INFUSION
     Route: 042
  2. TYLENOL WITH CODEINE [Concomitant]
     Active Substance: ACETAMINOPHEN\CODEINE PHOSPHATE
     Route: 048
  3. ACTEMRA [Suspect]
     Active Substance: TOCILIZUMAB
     Dosage: SECOND INFUSION
     Route: 042
  4. INSULIN [Concomitant]
     Active Substance: INSULIN NOS
     Dosage: PEN NEEDLE (INSULIN NEEDLE (DISPOSABLE)) 29 GAUGE NEEDLE
     Route: 065
  5. PREDNISONE. [Concomitant]
     Active Substance: PREDNISONE
     Dosage: 3 TABLETS A DAY FOR 4 DAYS/2 TABLETS A DAY FOR 4 DAYS/1 TABLETA A DAY FOR 4 DAYS
     Route: 048

REACTIONS (5)
  - Urticaria [Recovered/Resolved]
  - Asthenia [Unknown]
  - Rash [Recovered/Resolved]
  - Dry mouth [Unknown]
  - Musculoskeletal stiffness [Unknown]
